FAERS Safety Report 7392881-7 (Version None)
Quarter: 2011Q2

REPORT INFORMATION
  Report Type: 
  Country: None (occurrence: None)
  Receive Date: 20110404
  Receipt Date: 20110329
  Transmission Date: 20111010
  Serious: Yes (Death)
  Sender: FDA-Public Use
  Company Number: FR-GENZYME-CLOF-1001530

PATIENT

DRUGS (4)
  1. EVOLTRA [Suspect]
     Indication: STEM CELL TRANSPLANT
  2. FLUDARA [Suspect]
     Indication: ACUTE LEUKAEMIA
     Dosage: UNK
     Route: 065
  3. FLUDARA [Suspect]
     Indication: STEM CELL TRANSPLANT
  4. EVOLTRA [Suspect]
     Indication: ACUTE LEUKAEMIA
     Dosage: UNK
     Route: 065

REACTIONS (2)
  - LEUKAEMIA RECURRENT [None]
  - ACUTE LEUKAEMIA [None]
